FAERS Safety Report 8282643-0 (Version None)
Quarter: 2012Q2

REPORT INFORMATION
  Report Type: 
  Country: None (occurrence: None)
  Receive Date: 20120413
  Receipt Date: 20120411
  Transmission Date: 20120825
  Serious: No
  Sender: FDA-Public Use
  Company Number: US-PFIZER INC-2012090749

PATIENT
  Sex: Female

DRUGS (3)
  1. IBUPROFEN (ADVIL) [Suspect]
     Indication: ARTHRITIS
     Dosage: 1 OR 2 CAPLETS OF 200 MG DAILY
     Route: 048
  2. IBUPROFEN (ADVIL) [Suspect]
  3. IBUPROFEN (ADVIL) [Suspect]
     Indication: PAIN

REACTIONS (2)
  - EPISTAXIS [None]
  - WEIGHT FLUCTUATION [None]
